FAERS Safety Report 8345536-6 (Version None)
Quarter: 2012Q2

REPORT INFORMATION
  Report Type: 
  Country: None (occurrence: None)
  Receive Date: 20120508
  Receipt Date: 20120423
  Transmission Date: 20120825
  Serious: Yes (Other)
  Sender: FDA-Public Use
  Company Number: CHPA2012US009812

PATIENT
  Age: 59 Year
  Sex: Female

DRUGS (1)
  1. MAALOX MAX ANTACID+ANTIGAS [Suspect]
     Indication: DYSPEPSIA
     Dosage: 5-8 PER DAY, AS NEEDED
     Route: 048

REACTIONS (2)
  - DIABETES MELLITUS [None]
  - BLOOD GLUCOSE INCREASED [None]
